FAERS Safety Report 11574830 (Version 2)
Quarter: 2015Q4

REPORT INFORMATION
  Report Type: Spontaneous
  Country: GB (occurrence: GB)
  Receive Date: 20150930
  Receipt Date: 20151012
  Transmission Date: 20160304
  Serious: Yes (Hospitalization)
  Sender: FDA-Public Use
  Company Number: GB-ACCORD-034057

PATIENT

DRUGS (2)
  1. MONTELUKAST [Suspect]
     Active Substance: MONTELUKAST SODIUM
     Indication: ASTHMA
     Route: 048
  2. SINGULAIR [Suspect]
     Active Substance: MONTELUKAST SODIUM
     Indication: ASTHMA
     Dosage: 10 MG, NOCTE (NIGHT) (BLUE/WHITE BOX).?ALSO RECEIVED 10 MG NOCTE (RED BOX) FROM UNKNOWN DATE
     Route: 048
     Dates: start: 2005

REACTIONS (4)
  - Dyspnoea [Unknown]
  - Pneumonia mycoplasmal [Unknown]
  - Product substitution issue [Unknown]
  - Drug effect incomplete [Unknown]

NARRATIVE: CASE EVENT DATE: 2005
